FAERS Safety Report 9630634 (Version 1)
Quarter: 2013Q4

REPORT INFORMATION
  Report Type: Spontaneous
  Country: IN (occurrence: None)
  Receive Date: 20131011
  Receipt Date: 20131011
  Transmission Date: 20140711
  Serious: Yes (Other)
  Sender: FDA-Public Use
  Company Number: 2013P1019869

PATIENT
  Age: 35 Year
  Sex: Male

DRUGS (4)
  1. LITHIUM [Suspect]
     Indication: OBSESSIVE-COMPULSIVE DISORDER
  2. SERTRALINE [Suspect]
     Indication: OBSESSIVE-COMPULSIVE DISORDER
  3. CLOMIPRAMINE [Suspect]
     Indication: OBSESSIVE-COMPULSIVE DISORDER
  4. RISPERIDONE [Concomitant]

REACTIONS (6)
  - Hallucination, auditory [None]
  - Drug effect decreased [None]
  - Treatment noncompliance [None]
  - Incorrect dose administered [None]
  - Serotonin syndrome [None]
  - Drug interaction [None]
